FAERS Safety Report 7313308-7 (Version None)
Quarter: 2011Q1

REPORT INFORMATION
  Report Type: 
  Country: None (occurrence: None)
  Receive Date: 20110225
  Receipt Date: 20100923
  Transmission Date: 20110831
  Serious: No
  Sender: FDA-Public Use
  Company Number: US-MYLANLABS-2010S1017632

PATIENT
  Age: 74 Year
  Sex: Male
  Weight: 86.18 kg

DRUGS (4)
  1. GLIPIZIDE [Concomitant]
     Indication: DIABETES MELLITUS
  2. SIMVASTATIN [Concomitant]
     Indication: BLOOD CHOLESTEROL INCREASED
  3. LISINOPRIL AND HYDROCHLOROTHIAZIDE [Concomitant]
     Indication: HYPERTENSION
     Dosage: 20MG/12.5MG
  4. METFORMIN HCL [Suspect]
     Indication: DIABETES MELLITUS
     Route: 048
     Dates: start: 20100913

REACTIONS (3)
  - DRUG EFFECT DECREASED [None]
  - DIARRHOEA [None]
  - BLOOD GLUCOSE INCREASED [None]
